FAERS Safety Report 6610868-6 (Version None)
Quarter: 2010Q1

REPORT INFORMATION
  Report Type: 
  Country: None (occurrence: None)
  Receive Date: 20100302
  Receipt Date: 20100219
  Transmission Date: 20100710
  Serious: Yes (Other)
  Sender: FDA-Public Use
  Company Number: CA-MERCK-0907CAN00093

PATIENT
  Age: 52 Year
  Sex: Male

DRUGS (17)
  1. RALTEGRAVIR POTASSIUM [Suspect]
     Indication: HIV INFECTION
     Route: 048
  2. LAMIVUDINE [Suspect]
     Indication: HIV INFECTION
     Route: 065
  3. ABACAVIR SULFATE [Suspect]
     Indication: HIV INFECTION
     Route: 065
  4. DARUNAVIR [Suspect]
     Indication: HIV INFECTION
     Route: 065
  5. RITONAVIR [Suspect]
     Indication: HIV INFECTION
     Route: 065
  6. ETRAVIRINE [Suspect]
     Indication: HIV INFECTION
     Route: 065
  7. DELAVIRDINE MESYLATE [Suspect]
     Indication: HIV INFECTION
     Route: 065
  8. DIDANOSINE [Suspect]
     Indication: HIV INFECTION
     Route: 065
  9. EFAVIRENZ [Suspect]
     Indication: HIV INFECTION
     Route: 048
  10. INDINAVIR [Suspect]
     Indication: HIV INFECTION
     Route: 065
  11. LOPINAVIR [Suspect]
     Indication: HIV INFECTION
     Route: 065
  12. NELFINAVIR MESYLATE [Suspect]
     Route: 065
  13. NEVIRAPINE [Suspect]
     Route: 065
  14. SAQUINAVIR [Suspect]
     Indication: HIV INFECTION
     Route: 065
  15. STAVUDINE [Suspect]
     Route: 065
  16. TENOFOVIR [Suspect]
     Indication: HIV INFECTION
     Route: 065
  17. ZIDOVUDINE [Suspect]
     Indication: HIV INFECTION
     Route: 065

REACTIONS (5)
  - DIPLOPIA [None]
  - EYELID PTOSIS [None]
  - LIPODYSTROPHY ACQUIRED [None]
  - MITOCHONDRIAL TOXICITY [None]
  - PROGRESSIVE EXTERNAL OPHTHALMOPLEGIA [None]
